FAERS Safety Report 6730447-X (Version None)
Quarter: 2010Q2

REPORT INFORMATION
  Report Type: 
  Country: None (occurrence: None)
  Receive Date: 20100518
  Receipt Date: 20100513
  Transmission Date: 20101027
  Serious: Yes (Hospitalization)
  Sender: FDA-Public Use
  Company Number: B0653237A

PATIENT
  Age: 63 Year
  Sex: Male

DRUGS (1)
  1. AUGMENTIN '125' [Suspect]
     Indication: ORAL INFECTION
     Route: 048
     Dates: start: 20090915, end: 20090921

REACTIONS (1)
  - HEPATITIS TOXIC [None]
